FAERS Safety Report 19278400 (Version 5)
Quarter: 2021Q4

REPORT INFORMATION
  Report Type: Spontaneous
  Country: US (occurrence: US)
  Receive Date: 20210520
  Receipt Date: 20211013
  Transmission Date: 20220303
  Serious: Yes (Life-Threatening, Other)
  Sender: FDA-Public Use
  Company Number: US-BLUEPRINT MEDICINES CORPORATION-SP-US-2021-000633

PATIENT
  Age: 66 Year
  Sex: Female
  Weight: 60.38 kg

DRUGS (18)
  1. AYVAKIT [Suspect]
     Active Substance: AVAPRITINIB
     Indication: Gastrointestinal stromal tumour
     Dosage: TAKE 1 TABLET (300MG) BY MOUTH FOR TWO DAYS THEN OFF FOR ONE DAY AND CONTINUE CYCLE NO BREAK
     Route: 048
     Dates: start: 20200626, end: 20200707
  2. AYVAKIT [Suspect]
     Active Substance: AVAPRITINIB
     Route: 048
     Dates: start: 20200716, end: 20200910
  3. AYVAKIT [Suspect]
     Active Substance: AVAPRITINIB
     Route: 048
     Dates: end: 20200914
  4. AYVAKIT [Suspect]
     Active Substance: AVAPRITINIB
     Route: 048
     Dates: end: 20210414
  5. AYVAKIT [Suspect]
     Active Substance: AVAPRITINIB
     Route: 048
     Dates: end: 20210421
  6. AMLODIPINE [Concomitant]
     Active Substance: AMLODIPINE BESYLATE
     Indication: Product used for unknown indication
     Route: 048
  7. DIPHENHYDRAMINE [Concomitant]
     Active Substance: DIPHENHYDRAMINE
     Indication: Product used for unknown indication
     Dosage: 1 CAP 1 HOUR PRIOR TO SCAN. TOTAL OF 5 CAPSULES.
     Route: 048
  8. FERROUS SULFATE [Concomitant]
     Active Substance: FERROUS SULFATE
     Indication: Product used for unknown indication
     Dosage: TAKE WITH VITAMIN C
     Route: 048
  9. FOLVITE [Concomitant]
     Active Substance: FOLIC ACID
     Indication: Product used for unknown indication
     Route: 048
  10. LASIX [Concomitant]
     Active Substance: FUROSEMIDE
     Indication: Product used for unknown indication
     Route: 048
  11. LASIX [Concomitant]
     Active Substance: FUROSEMIDE
     Dosage: TAKE 0.5 TABLETS DAILY
     Route: 048
  12. IBUPROFEN [Concomitant]
     Active Substance: IBUPROFEN
     Indication: Product used for unknown indication
     Route: 048
  13. IBUPROFEN [Concomitant]
     Active Substance: IBUPROFEN
     Dosage: TAKE 0.5 TABLETS DAILY
     Route: 048
  14. PRILOSEC [Concomitant]
     Active Substance: OMEPRAZOLE MAGNESIUM
     Indication: Product used for unknown indication
     Route: 048
  15. PRILOSEC [Concomitant]
     Active Substance: OMEPRAZOLE MAGNESIUM
     Dosage: TAKE 0.5 TABLETS DAILY
     Route: 048
  16. DELTASONE [Concomitant]
     Active Substance: PREDNISONE
     Indication: Product used for unknown indication
     Dosage: 13 HOURS, 7 HOURS, AND 30 MINUTES BEFORE SCAN
     Route: 048
  17. DELTASONE [Concomitant]
     Active Substance: PREDNISONE
     Dosage: TAKE 0.5 TABLETS DAILY
     Route: 048
  18. RIPRETINIB [Concomitant]
     Active Substance: RIPRETINIB
     Indication: Product used for unknown indication
     Route: 065

REACTIONS (17)
  - Pancytopenia [Unknown]
  - Disease progression [Unknown]
  - Cataract [Unknown]
  - Blood creatine phosphokinase increased [Recovered/Resolved]
  - Cardiac murmur [Not Recovered/Not Resolved]
  - Oedema peripheral [Recovering/Resolving]
  - Nausea [Recovered/Resolved]
  - Vomiting [Recovered/Resolved]
  - Fatigue [Not Recovered/Not Resolved]
  - Dizziness [Not Recovered/Not Resolved]
  - Palmar-plantar erythrodysaesthesia syndrome [Unknown]
  - Face oedema [Recovering/Resolving]
  - Glucose tolerance impaired [Unknown]
  - Off label use [Unknown]
  - Diarrhoea [Recovered/Resolved]
  - Hypophosphataemia [Unknown]
  - Hypokalaemia [Unknown]

NARRATIVE: CASE EVENT DATE: 20200626
